FAERS Safety Report 8080470-0 (Version None)
Quarter: 2012Q1

REPORT INFORMATION
  Report Type: 
  Country: None (occurrence: None)
  Receive Date: 20120130
  Receipt Date: 20120123
  Transmission Date: 20120608
  Serious: Yes (Other)
  Sender: FDA-Public Use
  Company Number: US-JNJFOC-20111211846

PATIENT
  Age: 42 Year
  Sex: Female

DRUGS (2)
  1. NORTRIPTYLINE HCL [Interacting]
     Indication: MYOFASCIAL PAIN SYNDROME
     Route: 065
  2. TRAMADOL HCL [Suspect]
     Indication: MYOFASCIAL PAIN SYNDROME
     Route: 048

REACTIONS (2)
  - DRUG INTERACTION [None]
  - SEROTONIN SYNDROME [None]
